FAERS Safety Report 26208390 (Version 1)
Quarter: 2025Q4

REPORT INFORMATION
  Report Type: Spontaneous
  Country: US (occurrence: US)
  Receive Date: 20251229
  Receipt Date: 20251229
  Transmission Date: 20260117
  Serious: No
  Sender: UROGEN PHARMA
  Company Number: US-UROGEN PHARMA LTD.-2025-UGN-000220

PATIENT

DRUGS (2)
  1. JELMYTO [Suspect]
     Active Substance: MITOMYCIN
     Indication: Product used for unknown indication
     Dosage: 13 MILLILITER (INSTILLATION)
     Route: 065
     Dates: start: 20251029, end: 20251029
  2. JELMYTO [Suspect]
     Active Substance: MITOMYCIN
     Dosage: 13 MILLILITER (INSTILLATION)
     Route: 065
     Dates: start: 20251112, end: 20251112

REACTIONS (2)
  - Adverse event [Unknown]
  - Urinary tract infection [Unknown]

NARRATIVE: CASE EVENT DATE: 20250101
